FAERS Safety Report 17159732 (Version 6)
Quarter: 2020Q2

REPORT INFORMATION
  Report Type: Spontaneous
  Country: PT (occurrence: PT)
  Receive Date: 20191216
  Receipt Date: 20200501
  Transmission Date: 20200713
  Serious: Yes (Other)
  Sender: FDA-Public Use
  Company Number: PT-BAYER-2019-225996

PATIENT
  Age: 80 Year
  Sex: Male
  Weight: 75 kg

DRUGS (41)
  1. DOCETAXEL. [Concomitant]
     Active Substance: DOCETAXEL
     Route: 042
  2. FLUTICASONE. [Concomitant]
     Active Substance: FLUTICASONE
     Route: 045
  3. FLUTICASONE. [Concomitant]
     Active Substance: FLUTICASONE
     Route: 045
  4. LOSARTAN. [Concomitant]
     Active Substance: LOSARTAN
  5. NITROGLICERINA [Concomitant]
     Active Substance: NITROGLYCERIN
  6. XOFIGO [Suspect]
     Active Substance: RADIUM RA-223 DICHLORIDE
     Indication: METASTASES TO BONE
  7. DOCETAXEL. [Concomitant]
     Active Substance: DOCETAXEL
     Route: 042
  8. GLYCERYL TRINITRATE [Concomitant]
     Active Substance: NITROGLYCERIN
  9. ZOLEDRONIC ACID [Suspect]
     Active Substance: ZOLEDRONIC ACID
     Indication: PROSTATE CANCER
     Dosage: UNK
     Route: 042
     Dates: start: 201801, end: 20181221
  10. ZOLEDRONIC ACID [Suspect]
     Active Substance: ZOLEDRONIC ACID
     Indication: METASTASES TO BONE
  11. GOSERELIN [Concomitant]
     Active Substance: GOSERELIN
  12. GOSERELIN [Concomitant]
     Active Substance: GOSERELIN
     Dates: end: 20180802
  13. ESCITALOPRAM [Concomitant]
     Active Substance: ESCITALOPRAM OXALATE
  14. HYDROCORTISONE. [Concomitant]
     Active Substance: HYDROCORTISONE
  15. AMLODIPINE [Concomitant]
     Active Substance: AMLODIPINE BESYLATE
  16. SOLIFENACIN [Concomitant]
     Active Substance: SOLIFENACIN
  17. PARACETAMOL [Concomitant]
     Active Substance: ACETAMINOPHEN
  18. GLYCERYL TRINITRATE [Concomitant]
     Active Substance: NITROGLYCERIN
     Route: 062
  19. LOSARTAN. [Concomitant]
     Active Substance: LOSARTAN
  20. PREDNISOLONE. [Concomitant]
     Active Substance: PREDNISOLONE
  21. HYDROCORTISONE. [Concomitant]
     Active Substance: HYDROCORTISONE
  22. PANTOPRAZOLE [Concomitant]
     Active Substance: PANTOPRAZOLE
  23. PARACETAMOL [Concomitant]
     Active Substance: ACETAMINOPHEN
  24. PREDNISOLONE. [Concomitant]
     Active Substance: PREDNISOLONE
  25. CARVEDILOL. [Concomitant]
     Active Substance: CARVEDILOL
  26. NICORANDIL [Concomitant]
     Active Substance: NICORANDIL
  27. ESCITALOPRAM [Concomitant]
     Active Substance: ESCITALOPRAM OXALATE
  28. GABAPENTIN. [Concomitant]
     Active Substance: GABAPENTIN
  29. TAMSULOSIN [Concomitant]
     Active Substance: TAMSULOSIN
  30. XOFIGO [Suspect]
     Active Substance: RADIUM RA-223 DICHLORIDE
     Indication: HORMONE-REFRACTORY PROSTATE CANCER
     Dosage: 55 MBQ (75 KG), Q4WK
     Route: 042
     Dates: start: 20190806, end: 20191001
  31. GOSERELIN [Concomitant]
     Active Substance: GOSERELIN
     Dates: end: 20180802
  32. GLYCERYL TRINITRATE [Concomitant]
     Active Substance: NITROGLYCERIN
     Route: 062
  33. PANTOPRAZOLE [Concomitant]
     Active Substance: PANTOPRAZOLE
  34. AMLODIPINE [Concomitant]
     Active Substance: AMLODIPINE BESYLATE
  35. CARVEDILOL. [Concomitant]
     Active Substance: CARVEDILOL
  36. NICORANDIL [Concomitant]
     Active Substance: NICORANDIL
  37. GABAPENTIN. [Concomitant]
     Active Substance: GABAPENTIN
  38. RUPATADINE [Concomitant]
     Active Substance: RUPATADINE
  39. RUPATADINE [Concomitant]
     Active Substance: RUPATADINE
  40. TRAMADOL. [Concomitant]
     Active Substance: TRAMADOL
  41. TRAMADOL. [Concomitant]
     Active Substance: TRAMADOL

REACTIONS (1)
  - Osteonecrosis of jaw [Recovered/Resolved with Sequelae]

NARRATIVE: CASE EVENT DATE: 20191017
